FAERS Safety Report 7984459-9 (Version None)
Quarter: 2011Q4

REPORT INFORMATION
  Report Type: 
  Country: None (occurrence: None)
  Receive Date: 20111216
  Receipt Date: 20111206
  Transmission Date: 20120403
  Serious: Yes (Hospitalization)
  Sender: FDA-Public Use
  Company Number: US-BAYER-2011-118389

PATIENT
  Age: 28 Year
  Sex: Female
  Weight: 98.866 kg

DRUGS (1)
  1. YAZ [Suspect]
     Dosage: UNK
     Route: 048
     Dates: start: 20100501, end: 20101001

REACTIONS (2)
  - INJURY [None]
  - CHOLECYSTECTOMY [None]
